FAERS Safety Report 7021443-6 (Version None)
Quarter: 2010Q3

REPORT INFORMATION
  Report Type: 
  Country: None (occurrence: None)
  Receive Date: 20100929
  Receipt Date: 20100921
  Transmission Date: 20110219
  Serious: Yes (Other)
  Sender: FDA-Public Use
  Company Number: US-AMGEN-QUU440022

PATIENT
  Sex: Male

DRUGS (17)
  1. NPLATE [Suspect]
     Indication: IDIOPATHIC THROMBOCYTOPENIC PURPURA
     Dates: start: 20100505
  2. CORTICOSTEROIDS [Concomitant]
     Dates: start: 20100310
  3. RITUXIMAB [Concomitant]
     Dates: start: 20100420
  4. ASPIRIN [Concomitant]
  5. METFORMIN [Concomitant]
  6. LIPITOR [Concomitant]
  7. LISINOPRIL [Concomitant]
  8. ACTOS [Concomitant]
  9. FLOMAX [Concomitant]
  10. FOLIC ACID [Concomitant]
  11. VITAMIN B-12 [Concomitant]
  12. DEXAMETHASONE [Concomitant]
  13. LASIX [Concomitant]
  14. POTASSIUM [Concomitant]
  15. HYDROCHLOROTHIAZIDE [Concomitant]
  16. PEMETREXED DISODIUM [Concomitant]
  17. CARBOPLATIN [Concomitant]

REACTIONS (1)
  - CEREBROVASCULAR ACCIDENT [None]
